FAERS Safety Report 9152940 (Version 2)
Quarter: 2013Q1

REPORT INFORMATION
  Report Type: Other
  Country: NO (occurrence: NO)
  Receive Date: 20130205
  Receipt Date: 20130320
  Transmission Date: 20140127
  Serious: Yes (Death, Congenital Anomaly, Other)
  Sender: FDA-Public Use
  Company Number: NO-RB-049470-13

PATIENT
  Sex: 0

DRUGS (5)
  1. BUPRENORPHINE [Suspect]
     Indication: DRUG DEPENDENCE
     Dosage: THROUGHOUT PREGNANCY
     Route: 064
  2. ALCOHOL [Suspect]
     Indication: PRODUCT USED FOR UNKNOWN INDICATION
     Dosage: 1-3 DRINKS A MONTH UP TO GA 12
     Route: 064
  3. NICOTINE [Suspect]
     Indication: TOBACCO USER
     Dosage: APPROXIMATELY 30 CIGARETTES/DAY FROM CONCEPTION UNTIL 2ND TRIMESTER
     Route: 064
  4. NICOTINE [Suspect]
     Dosage: 15 CIGARETTES DAY FROM 2ND TRIMESTER
     Route: 064
  5. BENZODIAZEPINES [Suspect]
     Indication: PRODUCT USED FOR UNKNOWN INDICATION
     Dosage: 2-3 OCCASIONS A MONTH DURING THE 2ND AND 3RD TRIMESTERS
     Route: 064

REACTIONS (5)
  - Foetal exposure during pregnancy [Recovered/Resolved]
  - Congenital hydrocephalus [Fatal]
  - Premature baby [Recovered/Resolved]
  - Low birth weight baby [Recovered/Resolved]
  - Talipes [Unknown]
